FAERS Safety Report 9567537 (Version 1)
Quarter: 2013Q3

REPORT INFORMATION
  Report Type: Spontaneous
  Country: US (occurrence: US)
  Receive Date: 20130930
  Receipt Date: 20130930
  Transmission Date: 20140515
  Serious: No
  Sender: FDA-Public Use
  Company Number: US-AMGEN-USASP2012079849

PATIENT
  Sex: Female

DRUGS (5)
  1. ENBREL [Suspect]
     Indication: PSORIASIS
     Dosage: 50 MG, 2 TIMES/WK
     Route: 058
  2. LANTUS [Concomitant]
     Dosage: UNK
  3. METFORMIN [Concomitant]
     Dosage: 500 MG, UNK
  4. SORIATANE [Concomitant]
     Dosage: 17.5 MG, UNK
  5. AMITRIPTYLIN [Concomitant]
     Dosage: 25 MG, UNK

REACTIONS (1)
  - Injection site vesicles [Unknown]
